FAERS Safety Report 8461633-9 (Version None)
Quarter: 2012Q2

REPORT INFORMATION
  Report Type: 
  Country: None (occurrence: None)
  Receive Date: 20120625
  Receipt Date: 20120618
  Transmission Date: 20120825
  Serious: Yes (Hospitalization)
  Sender: FDA-Public Use
  Company Number: PHFR2012GB003537

PATIENT
  Age: 76 Year
  Sex: Female
  Weight: 83 kg

DRUGS (11)
  1. SIMVASTATIN [Concomitant]
     Dates: start: 20120208, end: 20120525
  2. TRIMETHOPRIM [Concomitant]
     Dates: start: 20120419, end: 20120426
  3. ASPIRIN [Concomitant]
     Dates: start: 20120208, end: 20120525
  4. ACETAMINOPHEN [Concomitant]
     Dates: start: 20120208, end: 20120525
  5. PERINDOPRIL ERBUMINE [Concomitant]
     Dates: start: 20120208, end: 20120525
  6. RIVASTIGMINE [Suspect]
     Dates: start: 20120208, end: 20120525
  7. CITALOPRAM HYDROBROMIDE [Concomitant]
     Dates: start: 20120208, end: 20120525
  8. NITROFURANTOIN [Concomitant]
     Dates: start: 20120508, end: 20120515
  9. ALBUTEROL [Concomitant]
     Dates: start: 20120208, end: 20120525
  10. LANSOPRAZOLE [Concomitant]
     Dates: start: 20120208, end: 20120525
  11. FLUTICASONE [Concomitant]
     Dates: start: 20120208, end: 20120525

REACTIONS (2)
  - BRADYCARDIA [None]
  - FALL [None]
